FAERS Safety Report 6616243-2 (Version None)
Quarter: 2010Q1

REPORT INFORMATION
  Report Type: 
  Country: None (occurrence: None)
  Receive Date: 20100226
  Receipt Date: 20100217
  Transmission Date: 20100710
  Serious: Yes (Hospitalization)
  Sender: FDA-Public Use
  Company Number: 230344K09CAN

PATIENT
  Sex: Male

DRUGS (10)
  1. REBIF [Suspect]
     Indication: RELAPSING-REMITTING MULTIPLE SCLEROSIS
     Dosage: 44 MCG, 3 IN 1 WEEKS
     Dates: start: 20010813, end: 20090101
  2. METFORMIN HCL [Concomitant]
  3. APO-ENALAPRIL (ENALAPRIL) [Concomitant]
  4. APO-METOPROLOL (METOPROLOL TARTRATE) [Concomitant]
  5. LIPITOR [Concomitant]
  6. INSULIN (INSULIN) [Concomitant]
  7. RATIO-OMEPRAZOLE (OMEPRAZOLE) [Concomitant]
  8. APO-OZAZEPAM [APO-OXAZEPAM] (OXAZEPAM) [Concomitant]
  9. ASPIRIN [Concomitant]
  10. PLAVIX [Concomitant]

REACTIONS (3)
  - DRUG INEFFECTIVE [None]
  - FEAR OF NEEDLES [None]
  - MYOCARDIAL INFARCTION [None]
